FAERS Safety Report 9033553 (Version 1)
Quarter: 2013Q1

REPORT INFORMATION
  Report Type: Spontaneous
  Country: DK (occurrence: FR)
  Receive Date: 20130128
  Receipt Date: 20130128
  Transmission Date: 20140127
  Serious: Yes (Hospitalization)
  Sender: FDA-Public Use
  Company Number: FR-FRI-1000042164

PATIENT
  Age: 87 Year
  Sex: Female

DRUGS (5)
  1. ESCITALOPRAM [Suspect]
     Indication: DEPRESSION
     Route: 048
     Dates: start: 20120501, end: 20121115
  2. EVISTA [Concomitant]
     Route: 048
  3. TANAKAN [Concomitant]
     Route: 048
  4. UVEDOSE [Concomitant]
     Route: 048
  5. CACIT [Concomitant]
     Route: 048

REACTIONS (2)
  - Thrombocytopenia [Recovered/Resolved]
  - Purpura [Recovered/Resolved]
